FAERS Safety Report 9824955 (Version 1)
Quarter: 2014Q1

REPORT INFORMATION
  Report Type: Report from Study
  Country: CA (occurrence: CA)
  Receive Date: 20140117
  Receipt Date: 20140117
  Transmission Date: 20141002
  Serious: Yes (Hospitalization)
  Sender: FDA-Public Use
  Company Number: CA-JNJFOC-20140105463

PATIENT
  Sex: Female
  Weight: 55.1 kg

DRUGS (11)
  1. REMICADE [Suspect]
     Indication: CROHN^S DISEASE
     Dosage: 78 INFUSION
     Route: 042
  2. LOMOTIL [Concomitant]
     Route: 065
  3. ENTOCORT [Concomitant]
     Route: 065
  4. ATIVAN [Concomitant]
     Route: 065
  5. VITAMIN B12 [Concomitant]
     Route: 065
  6. CITALOPRAM [Concomitant]
     Route: 065
  7. ADALAT [Concomitant]
     Route: 065
  8. CYPROHEPTADINE [Concomitant]
     Route: 065
  9. HYDROMORPHONE [Concomitant]
     Route: 065
  10. FLOMAX [Concomitant]
     Route: 065
  11. PULMICORT [Concomitant]
     Route: 065

REACTIONS (1)
  - Nephrolithiasis [Recovered/Resolved]
